FAERS Safety Report 23303900 (Version 1)
Quarter: 2023Q4

REPORT INFORMATION
  Report Type: Spontaneous
  Country: CA (occurrence: CA)
  Receive Date: 20231215
  Receipt Date: 20231215
  Transmission Date: 20240109
  Serious: Yes (Hospitalization, Other)
  Sender: FDA-Public Use
  Company Number: CA-ANIPHARMA-2023-CA-004158

PATIENT
  Age: 60 Year
  Sex: Male

DRUGS (10)
  1. FLUVOXAMINE [Suspect]
     Active Substance: FLUVOXAMINE
     Indication: Psychotic disorder
     Dosage: 200 MILLIGRAMS
     Route: 065
  2. QUETIAPINE [Concomitant]
     Active Substance: QUETIAPINE
     Dosage: 800 MG DAILY
     Route: 065
  3. DIVALPROEX SODIUM [Suspect]
     Active Substance: DIVALPROEX SODIUM
     Indication: Schizoaffective disorder bipolar type
     Dosage: 1500 MILLIGRAMS
  4. FLUOXETINE HYDROCHLORIDE [Suspect]
     Active Substance: FLUOXETINE HYDROCHLORIDE
     Indication: Psychotic disorder
     Dosage: 200 MILLIGRAMS DAILY
  5. ZOPICLONE [Suspect]
     Active Substance: ZOPICLONE
     Indication: Psychotic disorder
     Dosage: 15 MILLIGRAMS
     Route: 065
  6. CLOZAPINE [Suspect]
     Active Substance: CLOZAPINE
     Indication: Psychotic disorder
     Dosage: 625.0 MILLIGRAM(S) (625 MILLIGRAM(S), 1 IN 1 DAY), 150.0 MILLIGRAM(S) (150 MILLIGRAM(S), 1 IN 1 DAY)
     Route: 065
  7. OXAZEPAM [Suspect]
     Active Substance: OXAZEPAM
     Indication: Psychotic disorder
     Dosage: 20 MILLIGRAMS
     Route: 065
  8. BUSPIRONE [Suspect]
     Active Substance: BUSPIRONE HYDROCHLORIDE
     Indication: Psychotic disorder
     Dosage: 60 MILLIGRAMS
     Route: 065
  9. PROCYCLIDINE [Suspect]
     Active Substance: PROCYCLIDINE
     Indication: Psychotic disorder
     Dosage: 60 MILLIGRAMS
     Route: 065
  10. ZUCLOPENTHIXOL DECANOATE [Suspect]
     Active Substance: ZUCLOPENTHIXOL DECANOATE
     Indication: Psychotic disorder
     Dosage: 64.28 MILLIGRAM(S) (450 MILLIGRAM(S), 1 IN 1 WEEK)
     Route: 065

REACTIONS (11)
  - Condition aggravated [Recovering/Resolving]
  - Disorientation [Recovering/Resolving]
  - Delirium [Recovering/Resolving]
  - Drug level increased [Recovering/Resolving]
  - Irritability [Recovering/Resolving]
  - Obesity [Recovering/Resolving]
  - Orthostatic hypotension [Recovering/Resolving]
  - Sedation [Recovering/Resolving]
  - Tardive dyskinesia [Recovering/Resolving]
  - Aggression [Recovering/Resolving]
  - Labelled drug-drug interaction medication error [Recovering/Resolving]
